FAERS Safety Report 24723967 (Version 2)
Quarter: 2024Q4

REPORT INFORMATION
  Report Type: Report from Study
  Country: ES (occurrence: ES)
  Receive Date: 20241211
  Receipt Date: 20241213
  Transmission Date: 20250115
  Serious: Yes (Other)
  Sender: ABBVIE
  Company Number: ES-ABBVIE-6040485

PATIENT
  Age: 70 Year
  Sex: Female
  Weight: 66 kg

DRUGS (1)
  1. CARBIDOPA\LEVODOPA [Suspect]
     Active Substance: CARBIDOPA\LEVODOPA
     Indication: Parkinson^s disease
     Route: 058
     Dates: start: 20241009

REACTIONS (6)
  - Puncture site erythema [Not Recovered/Not Resolved]
  - Puncture site pain [Unknown]
  - Localised infection [Not Recovered/Not Resolved]
  - Puncture site induration [Not Recovered/Not Resolved]
  - Administration site warmth [Not Recovered/Not Resolved]
  - Nodule [Not Recovered/Not Resolved]

NARRATIVE: CASE EVENT DATE: 20240101
